FAERS Safety Report 8207198-8 (Version None)
Quarter: 2012Q1

REPORT INFORMATION
  Report Type: 
  Country: None (occurrence: None)
  Receive Date: 20120314
  Receipt Date: 20120309
  Transmission Date: 20120608
  Serious: No
  Sender: FDA-Public Use
  Company Number: US-PFIZER INC-2012063598

PATIENT
  Sex: Male
  Weight: 106.58 kg

DRUGS (15)
  1. TAMSULOSIN [Concomitant]
     Dosage: 0.4 MG, 1X/DAY
  2. VITAMIN D [Concomitant]
     Dosage: 1000 IU, 1X/DAY
  3. LOVAZA [Concomitant]
     Dosage: UNK, 1X/DAY
  4. BYSTOLIC [Concomitant]
     Dosage: 5 MG, 2X/DAY
  5. EXELON [Concomitant]
     Indication: AMNESIA
     Dosage: UNK
  6. NEXIUM [Concomitant]
     Dosage: 40 MG, 1X/DAY
  7. IMDUR [Concomitant]
     Dosage: 30 MG, 2X/DAY
  8. COENZYME Q10 [Concomitant]
     Dosage: 60 MG, 1X/DAY
  9. DIOVAN HCT [Concomitant]
     Dosage: UNK
  10. WARFARIN [Concomitant]
     Dosage: 5 MG, 1X/DAY
  11. LIPITOR [Suspect]
     Indication: BLOOD CHOLESTEROL INCREASED
     Dosage: 20 MG, 1X/DAY
     Route: 048
  12. KLOR-CON [Concomitant]
     Dosage: 4 TABLETS OF 10 MEQ AT A TIME, UNK
  13. HYDRALAZINE [Concomitant]
     Dosage: 25 MG, 3X/DAY
  14. AVODART [Concomitant]
     Indication: PROSTATOMEGALY
     Dosage: 0.5 MG, 1X/DAY
  15. LASIX [Concomitant]
     Dosage: 40 MG, 1X/DAY

REACTIONS (4)
  - PLATELET COUNT DECREASED [None]
  - PROTEIN TOTAL DECREASED [None]
  - WEIGHT DECREASED [None]
  - HIGH DENSITY LIPOPROTEIN DECREASED [None]
